FAERS Safety Report 14503726 (Version 1)
Quarter: 2018Q1

REPORT INFORMATION
  Report Type: Spontaneous
  Country: US (occurrence: US)
  Receive Date: 20180207
  Receipt Date: 20180207
  Transmission Date: 20180509
  Serious: Yes (Death)
  Sender: FDA-Public Use
  Company Number: None

PATIENT
  Sex: Female

DRUGS (17)
  1. PROBIOTIC [Concomitant]
     Active Substance: PROBIOTICS NOS
  2. FLUOXETINE [Concomitant]
     Active Substance: FLUOXETINE HYDROCHLORIDE
  3. LEVOTHYROXIN [Concomitant]
     Active Substance: LEVOTHYROXINE
  4. FUROSEMIDE. [Concomitant]
     Active Substance: FUROSEMIDE
  5. NADOLOL. [Concomitant]
     Active Substance: NADOLOL
  6. BACTRIM DS [Concomitant]
     Active Substance: SULFAMETHOXAZOLE\TRIMETHOPRIM
  7. DIAZEPAM. [Concomitant]
     Active Substance: DIAZEPAM
  8. BACLOFEN. [Concomitant]
     Active Substance: BACLOFEN
  9. MIRTAZAPINE. [Concomitant]
     Active Substance: MIRTAZAPINE
  10. DMZ/TMP [Concomitant]
  11. DOXEPIN [Concomitant]
     Active Substance: DOXEPIN
  12. SPIRONOLACT [Concomitant]
     Active Substance: SPIRONOLACTONE
  13. XIFAXAN [Suspect]
     Active Substance: RIFAXIMIN
     Indication: HEPATIC FAILURE
     Route: 048
     Dates: start: 20170506
  14. LASIX [Concomitant]
     Active Substance: FUROSEMIDE
  15. REMERON [Concomitant]
     Active Substance: MIRTAZAPINE
  16. OMEPRAZOLE. [Concomitant]
     Active Substance: OMEPRAZOLE
  17. LEVEMIR [Concomitant]
     Active Substance: INSULIN DETEMIR

REACTIONS (1)
  - Death [None]
